FAERS Safety Report 4912023-4 (Version None)
Quarter: 2006Q1

REPORT INFORMATION
  Report Type: 
  Country: None (occurrence: None)
  Receive Date: 20060213
  Receipt Date: 20060131
  Transmission Date: 20060701
  Serious: Yes (Hospitalization)
  Sender: FDA-Public Use
  Company Number: 2006016115

PATIENT
  Age: 24 Year
  Sex: Male

DRUGS (4)
  1. ZITHROMAX [Suspect]
     Indication: CHLAMYDIAL INFECTION
     Dosage: 1000 MG (1000 MG, SINGLE DOSE), ORAL
     Route: 048
     Dates: start: 20060130, end: 20060130
  2. CLARITHROMYCIN [Concomitant]
  3. MUCOSTA (REBAMIPIDE) [Concomitant]
  4. ALL OTHER THERAPEUTIC PRODUCTS (ALL OTHER THERAPEUTIC PRODUCTS) [Concomitant]

REACTIONS (3)
  - DRUG ERUPTION [None]
  - MALAISE [None]
  - SWELLING FACE [None]
